FAERS Safety Report 25302067 (Version 2)
Quarter: 2025Q3

REPORT INFORMATION
  Report Type: Report from Study
  Country: US (occurrence: US)
  Receive Date: 20250512
  Receipt Date: 20250704
  Transmission Date: 20251020
  Serious: Yes (Other)
  Sender: ABBVIE
  Company Number: US-ABBVIE-6269869

PATIENT
  Age: 61 Year
  Sex: Female

DRUGS (1)
  1. RINVOQ [Suspect]
     Active Substance: UPADACITINIB
     Indication: Psoriatic arthropathy
     Route: 048

REACTIONS (4)
  - Onychoclasis [Not Recovered/Not Resolved]
  - Psoriatic arthropathy [Recovering/Resolving]
  - Hand fracture [Not Recovered/Not Resolved]
  - Trigger finger [Unknown]

NARRATIVE: CASE EVENT DATE: 20250101
